FAERS Safety Report 4653602-1 (Version None)
Quarter: 2005Q2

REPORT INFORMATION
  Report Type: 
  Country: None (occurrence: None)
  Receive Date: 20050505
  Receipt Date: 20050422
  Transmission Date: 20051028
  Serious: Yes (Other)
  Sender: FDA-Public Use
  Company Number: DE-JNJFOC-20050405886

PATIENT
  Sex: Female

DRUGS (3)
  1. TOPAMAX [Suspect]
     Indication: MIGRAINE PROPHYLAXIS
     Route: 049
  2. EMIGRAN [Interacting]
     Indication: MIGRAINE
     Route: 065
  3. FLUOXETINE [Interacting]
     Indication: DEPRESSION
     Route: 065

REACTIONS (2)
  - DEPRESSION [None]
  - DRUG INTERACTION [None]
